FAERS Safety Report 8232307-4 (Version None)
Quarter: 2012Q1

REPORT INFORMATION
  Report Type: 
  Country: None (occurrence: None)
  Receive Date: 20120323
  Receipt Date: 20120312
  Transmission Date: 20120608
  Serious: Yes (Hospitalization)
  Sender: FDA-Public Use
  Company Number: FR-ELI_LILLY_AND_COMPANY-FR201203002988

PATIENT
  Sex: Male
  Weight: 85 kg

DRUGS (4)
  1. GEMZAR [Suspect]
     Indication: LUNG ADENOCARCINOMA
     Dosage: 1000 MG/M2, WEEKLY (1/W)
     Route: 042
     Dates: start: 20110906, end: 20120110
  2. PRAVASTATIN [Concomitant]
  3. INNOHEP [Concomitant]
  4. NEXIUM [Concomitant]

REACTIONS (2)
  - JAUNDICE CHOLESTATIC [None]
  - MIXED LIVER INJURY [None]
